FAERS Safety Report 9663657 (Version 2)
Quarter: 2013Q4

REPORT INFORMATION
  Report Type: Spontaneous
  Country: GB (occurrence: GB)
  Receive Date: 20131101
  Receipt Date: 20131101
  Transmission Date: 20140711
  Serious: Yes (Other)
  Sender: FDA-Public Use
  Company Number: PHFR2012GB003004

PATIENT
  Age: 39 Year
  Sex: Male

DRUGS (5)
  1. CLOZARIL [Suspect]
     Indication: SCHIZOPHRENIA
     Dosage: 250 MG, BID
     Route: 048
     Dates: start: 20030411
  2. AMISULPRIDE [Concomitant]
     Dosage: 300 MG, BID
     Route: 048
  3. PAROXETINE [Concomitant]
     Dosage: 30 MG, UNK
     Route: 048
  4. HYOSCINE [Concomitant]
     Indication: SALIVARY HYPERSECRETION
     Dosage: 300 UG, BID
     Route: 048
  5. ZOPICLONE [Concomitant]
     Indication: SLEEP DISORDER
     Dosage: 7.5 MG, QD
     Route: 048

REACTIONS (2)
  - White blood cell count increased [Unknown]
  - Neutrophil count increased [Unknown]
